FAERS Safety Report 7356174-6 (Version None)
Quarter: 2011Q1

REPORT INFORMATION
  Report Type: 
  Country: None (occurrence: None)
  Receive Date: 20110316
  Receipt Date: 20110311
  Transmission Date: 20110831
  Serious: Yes (Hospitalization, Other)
  Sender: FDA-Public Use
  Company Number: US-PFIZER INC-2006029317

PATIENT
  Sex: Female

DRUGS (4)
  1. NEURONTIN [Suspect]
     Indication: ILL-DEFINED DISORDER
     Dosage: 300 MG, 2X/DAY
     Dates: start: 19980802
  2. NEURONTIN [Suspect]
     Dosage: 400 MG, 3X/DAY
     Dates: start: 19990308
  3. LAMICTAL [Concomitant]
     Dosage: 25 MG, UNK
     Dates: start: 20000103
  4. NEURONTIN [Suspect]
     Dosage: 400 MG, 2X/DAY
     Dates: start: 19981015

REACTIONS (7)
  - DEPRESSION [None]
  - ABNORMAL DREAMS [None]
  - INTENTIONAL OVERDOSE [None]
  - AMNESIA [None]
  - SUICIDAL IDEATION [None]
  - ANGER [None]
  - DECREASED APPETITE [None]
